FAERS Safety Report 17152873 (Version 8)
Quarter: 2020Q4

REPORT INFORMATION
  Report Type: Report from Study
  Country: JP (occurrence: JP)
  Receive Date: 20191213
  Receipt Date: 20201228
  Transmission Date: 20210113
  Serious: Yes (Hospitalization)
  Sender: FDA-Public Use
  Company Number: JP-PFIZER INC-2019535952

PATIENT
  Age: 15 Year
  Sex: Male
  Weight: 43.5 kg

DRUGS (17)
  1. SIROLIMUS. [Suspect]
     Active Substance: SIROLIMUS
     Dosage: 1 MG, 1X/DAY (1 TAB/DAY)
     Route: 048
     Dates: start: 20181225, end: 20190507
  2. SIROLIMUS. [Suspect]
     Active Substance: SIROLIMUS
     Dosage: 2 MG, 1X/DAY (2 TAB/DAY)
     Route: 048
     Dates: start: 20190508, end: 20191208
  3. BLINDED THERAPY [Suspect]
     Active Substance: INVESTIGATIONAL PRODUCT
     Indication: FIBRODYSPLASIA OSSIFICANS PROGRESSIVA
     Dosage: 1 MG, 1X/DAY (1 TAB/DAY)
     Route: 048
     Dates: start: 20180424, end: 20180522
  4. BLINDED THERAPY [Suspect]
     Active Substance: INVESTIGATIONAL PRODUCT
     Dosage: 3 MG, 1X/DAY (3 TAB/DAY)
     Route: 048
     Dates: start: 20180523, end: 20181010
  5. LOXOPROFEN [Concomitant]
     Active Substance: LOXOPROFEN
     Indication: ANALGESIC THERAPY
     Dosage: UNK
     Route: 048
     Dates: start: 20180427
  6. KANAMYCIN [Concomitant]
     Active Substance: KANAMYCIN A SULFATE
     Indication: CHOLECYSTITIS
     Dosage: 6 DF, 3X/DAY
     Route: 048
     Dates: start: 20201028
  7. FAMOTIDINE D [Concomitant]
     Active Substance: FAMOTIDINE
     Indication: ANTACID THERAPY
     Dosage: UNK
     Route: 048
     Dates: start: 20180829
  8. MYONAL [NIMESULIDE] [Concomitant]
     Active Substance: NIMESULIDE
     Indication: MUSCLE TIGHTNESS
     Dosage: (2 DOSAGE FORMS,12 HR)
     Route: 048
  9. URSODEOXYCHOLIC ACID [Concomitant]
     Active Substance: URSODIOL
     Indication: CHOLECYSTITIS
     Dosage: 6 DF, 3X/DAY
     Route: 048
     Dates: start: 20200122
  10. SCOPOLAMINE BUTYLBROMIDE [Concomitant]
     Active Substance: SCOPOLAMINE
     Indication: CHOLECYSTITIS
     Dosage: 10 MG
     Route: 048
     Dates: start: 20200122
  11. MIYA-BM [Concomitant]
     Active Substance: CLOSTRIDIUM BUTYRICUM SPORES STRAIN M-55
     Indication: GASTROINTESTINAL DISORDER THERAPY
     Dosage: (3 DOSAGE FORMS,8 HR)
     Route: 048
  12. CALONAL [Concomitant]
     Active Substance: ACETAMINOPHEN
     Indication: ANALGESIC THERAPY
     Dosage: UNK
     Route: 048
  13. DAIKENCHUTO [Concomitant]
     Active Substance: HERBALS
     Indication: ABDOMINAL DISCOMFORT
     Dosage: 2.5 G, UNK
     Route: 048
  14. AMBROXOL HYDROCHLORIDE [Concomitant]
     Active Substance: AMBROXOL HYDROCHLORIDE
     Indication: CHOLECYSTITIS
     Dosage: (3 DOSAGE FORMS,8 HR)
     Route: 048
     Dates: start: 20201028
  15. SIROLIMUS. [Suspect]
     Active Substance: SIROLIMUS
     Dosage: 2 MG, 1X/DAY (2 TAB/DAY)
     Route: 048
     Dates: start: 20181109, end: 20181224
  16. SIROLIMUS. [Suspect]
     Active Substance: SIROLIMUS
     Dosage: 2 MG, 1X/DAY (2 MG/DAY)
     Route: 048
     Dates: start: 20200205
  17. SIROLIMUS. [Suspect]
     Active Substance: SIROLIMUS
     Indication: FIBRODYSPLASIA OSSIFICANS PROGRESSIVA
     Dosage: 1 MG, 1X/DAY (1 TAB/DAY)
     Route: 048
     Dates: start: 20181011, end: 20181108

REACTIONS (3)
  - Cholelithiasis [Recovered/Resolved]
  - Pneumonia [Recovered/Resolved]
  - Pleurisy [Recovered/Resolved]

NARRATIVE: CASE EVENT DATE: 20191128
